FAERS Safety Report 12309367 (Version 2)
Quarter: 2016Q2

REPORT INFORMATION
  Report Type: Report from Study
  Country: BR (occurrence: BR)
  Receive Date: 20160427
  Receipt Date: 20160509
  Transmission Date: 20160815
  Serious: Yes (Death, Other)
  Sender: FDA-Public Use
  Company Number: PHHY2016BR054365

PATIENT
  Age: 79 Year
  Sex: Male

DRUGS (1)
  1. TEGRETOL [Suspect]
     Active Substance: CARBAMAZEPINE
     Indication: SEIZURE
     Dosage: 200 MG, BID (FOR OVER A YEAR), 20 TABLETS
     Route: 048

REACTIONS (10)
  - Neoplasm malignant [Unknown]
  - Death [Fatal]
  - Muscular weakness [Unknown]
  - Speech disorder [Unknown]
  - Dementia Alzheimer^s type [Unknown]
  - Cerebrovascular accident [Unknown]
  - Blood glucose increased [Unknown]
  - Cachexia [Unknown]
  - Abasia [Unknown]
  - Eating disorder [Unknown]

NARRATIVE: CASE EVENT DATE: 201506
